FAERS Safety Report 24259521 (Version 1)
Quarter: 2024Q3

REPORT INFORMATION
  Report Type: Spontaneous
  Country: US (occurrence: None)
  Receive Date: 20240827
  Receipt Date: 20240827
  Transmission Date: 20241017
  Serious: No
  Sender: Public
  Company Number: None

PATIENT
  Age: 62 Year
  Sex: Male

DRUGS (1)
  1. EGRIFTA [Suspect]
     Active Substance: TESAMORELIN ACETATE
     Dosage: FREQUENCY : DAILY;?
     Route: 058
     Dates: start: 20240530, end: 20240819

REACTIONS (4)
  - Arthralgia [None]
  - Back pain [None]
  - Arthralgia [None]
  - Sleep disorder [None]

NARRATIVE: CASE EVENT DATE: 20240821
